FAERS Safety Report 15334514 (Version 3)
Quarter: 2018Q4

REPORT INFORMATION
  Report Type: Report from Study
  Country: US (occurrence: US)
  Receive Date: 20180830
  Receipt Date: 20181009
  Transmission Date: 20190204
  Serious: Yes (Other)
  Sender: FDA-Public Use
  Company Number: US-PFIZER INC-2018344101

PATIENT
  Age: 85 Year
  Sex: Female

DRUGS (2)
  1. IBRANCE [Suspect]
     Active Substance: PALBOCICLIB
     Dosage: 125 MG, DAILY
     Route: 048
     Dates: start: 201807, end: 20180926
  2. IBRANCE [Suspect]
     Active Substance: PALBOCICLIB
     Indication: BREAST CANCER
     Dosage: 125 MG, ALTERNATE DAY (CYCLIC) (FOR 21 DAYS ON AND 7 DAYS OFF)
     Route: 048
     Dates: start: 201807

REACTIONS (14)
  - Thinking abnormal [Unknown]
  - Renal impairment [Unknown]
  - Decreased appetite [Unknown]
  - Oral discomfort [Unknown]
  - Neoplasm progression [Unknown]
  - Lip exfoliation [Unknown]
  - Chest discomfort [Unknown]
  - Nausea [Unknown]
  - Asthenia [Unknown]
  - Fatigue [Unknown]
  - Tooth abscess [Unknown]
  - Dyspnoea exertional [Unknown]
  - Neutropenia [Recovering/Resolving]
  - Leukopenia [Recovering/Resolving]

NARRATIVE: CASE EVENT DATE: 2018
